FAERS Safety Report 13705604 (Version 1)
Quarter: 2017Q2

REPORT INFORMATION
  Report Type: Spontaneous
  Country: HR (occurrence: HR)
  Receive Date: 20170630
  Receipt Date: 20170630
  Transmission Date: 20170830
  Serious: Yes (Hospitalization)
  Sender: FDA-Public Use
  Company Number: HR-SUN PHARMACEUTICAL INDUSTRIES LTD-2017R1-144394

PATIENT
  Age: 80 Year
  Sex: Female

DRUGS (3)
  1. LEVODOPA [Suspect]
     Active Substance: LEVODOPA
     Indication: PARKINSON^S DISEASE
     Dosage: 625 MG, DAILY
     Route: 065
  2. ROPINIROLE. [Suspect]
     Active Substance: ROPINIROLE
     Indication: PARKINSON^S DISEASE
     Dosage: UNK
     Route: 065
  3. ENTACAPONE. [Suspect]
     Active Substance: ENTACAPONE
     Indication: PARKINSON^S DISEASE
     Dosage: 400 MG, DAILY
     Route: 065

REACTIONS (2)
  - Neuroleptic malignant syndrome [Recovering/Resolving]
  - Pancreatitis acute [Recovering/Resolving]
